FAERS Safety Report 7434144-7 (Version None)
Quarter: 2011Q2

REPORT INFORMATION
  Report Type: 
  Country: None (occurrence: None)
  Receive Date: 20110425
  Receipt Date: 20110418
  Transmission Date: 20111010
  Serious: No
  Sender: FDA-Public Use
  Company Number: US-PFIZER INC-2011085549

PATIENT
  Sex: Female

DRUGS (3)
  1. LANTUS [Suspect]
     Indication: TYPE 2 DIABETES MELLITUS
     Dosage: 35 UNITS, 1X/DAY
     Route: 058
     Dates: start: 20100801
  2. SITAGLIPTIN PHOSPHATE [Suspect]
     Dosage: UNK
     Dates: start: 20110401
  3. GLIPIZIDE [Suspect]
     Indication: TYPE 2 DIABETES MELLITUS
     Dosage: UNK
     Dates: start: 20100801

REACTIONS (3)
  - BLOOD GLUCOSE INCREASED [None]
  - WEIGHT INCREASED [None]
  - DRUG INEFFECTIVE [None]
